FAERS Safety Report 5468399-5 (Version None)
Quarter: 2007Q3

REPORT INFORMATION
  Report Type: 
  Country: None (occurrence: None)
  Receive Date: 20070926
  Receipt Date: 20070919
  Transmission Date: 20080115
  Serious: Yes (Other)
  Sender: FDA-Public Use
  Company Number: US-ROCHE-500750

PATIENT
  Age: 25 Year
  Sex: Female

DRUGS (1)
  1. ACCUTANE [Suspect]
     Indication: DRY SKIN
     Route: 065
     Dates: start: 20070325, end: 20070401

REACTIONS (2)
  - NO ADVERSE REACTION [None]
  - PREGNANCY [None]
